FAERS Safety Report 25963887 (Version 1)
Quarter: 2025Q4

REPORT INFORMATION
  Report Type: Spontaneous
  Country: US (occurrence: None)
  Receive Date: 20251025
  Receipt Date: 20251025
  Transmission Date: 20260118
  Serious: No
  Sender: FDA-CTU
  Company Number: None

PATIENT
  Age: 8 Year
  Sex: Female
  Weight: 28.35 kg

DRUGS (3)
  1. GAMMAGARD LIQUID [Suspect]
     Active Substance: HUMAN IMMUNOGLOBULIN G
     Indication: Primary immunodeficiency syndrome
     Dosage: OTHER STRENGTH : 5GM/50ML;?OTHER FREQUENCY : EVERY 4 WEEKS;?
     Route: 042
  2. DIPHENHYDRAMINE (ALLERGY ) [Concomitant]
  3. NORMAL SALINE FLUSH (5ML) [Concomitant]

REACTIONS (4)
  - Infusion related reaction [None]
  - Back pain [None]
  - Flank pain [None]
  - Hyperaesthesia [None]

NARRATIVE: CASE EVENT DATE: 20251022
